FAERS Safety Report 8417432-7 (Version None)
Quarter: 2012Q2

REPORT INFORMATION
  Report Type: 
  Country: None (occurrence: None)
  Receive Date: 20120606
  Receipt Date: 20120529
  Transmission Date: 20120825
  Serious: Yes (Hospitalization)
  Sender: FDA-Public Use
  Company Number: US-JNJFOC-20120520703

PATIENT
  Sex: Male
  Weight: 86.18 kg

DRUGS (6)
  1. FENTANYL-100 [Suspect]
     Indication: SPINAL FUSION SURGERY
     Dosage: 100 UG/HR (TWO 50 UG/HR PATCHES)
     Route: 062
     Dates: start: 20111001, end: 20111001
  2. METHADONE HCL [Suspect]
     Indication: NECK PAIN
     Route: 048
     Dates: end: 20120401
  3. DURAGESIC-100 [Suspect]
     Dosage: 200 UG/HR (TWO 100 UG/HR PATCHES)
     Route: 062
     Dates: start: 20120101
  4. DURAGESIC-100 [Suspect]
     Dosage: 200 UG/HR (TWO 100 UG/HR PATCHES)
     Route: 062
     Dates: start: 20111101
  5. DURAGESIC-100 [Suspect]
     Indication: SPINAL FUSION SURGERY
     Dosage: 200 UG/HR (TWO 100 UG/HR PATCHES)
     Route: 062
     Dates: end: 20120101
  6. PERCOCET [Concomitant]
     Indication: NECK PAIN
     Route: 048

REACTIONS (11)
  - DRUG EFFECT DECREASED [None]
  - WRONG TECHNIQUE IN DRUG USAGE PROCESS [None]
  - WITHDRAWAL SYNDROME [None]
  - PRODUCT QUALITY ISSUE [None]
  - PRODUCT PHYSICAL ISSUE [None]
  - THERAPEUTIC RESPONSE DECREASED [None]
  - BACK PAIN [None]
  - DRUG INEFFECTIVE [None]
  - PAIN [None]
  - DRUG DOSE OMISSION [None]
  - HOSPITALISATION [None]
